FAERS Safety Report 19408278 (Version 1)
Quarter: 2021Q2

REPORT INFORMATION
  Report Type: Spontaneous
  Country: IT (occurrence: IT)
  Receive Date: 20210611
  Receipt Date: 20210611
  Transmission Date: 20210717
  Serious: Yes (Hospitalization, Other)
  Sender: FDA-Public Use
  Company Number: IT-009507513-2106ITA002474

PATIENT
  Age: 65 Year
  Sex: Male

DRUGS (1)
  1. BCG LIVE [Suspect]
     Active Substance: BACILLUS CALMETTE-GUERIN SUBSTRAIN TICE LIVE ANTIGEN
     Indication: BLADDER CANCER
     Dosage: UNK
     Route: 043
     Dates: start: 201912, end: 202005

REACTIONS (2)
  - Disseminated Bacillus Calmette-Guerin infection [Recovered/Resolved]
  - Endocarditis bacterial [Recovered/Resolved]

NARRATIVE: CASE EVENT DATE: 202005
